FAERS Safety Report 5730215-1 (Version None)
Quarter: 2008Q2

REPORT INFORMATION
  Report Type: 
  Country: None (occurrence: None)
  Receive Date: 20080502
  Receipt Date: 20080421
  Transmission Date: 20081010
  Serious: Yes (Hospitalization)
  Sender: FDA-Public Use
  Company Number: 2008MB000047

PATIENT
  Age: 29 Year
  Sex: Female

DRUGS (4)
  1. CEPHALEXIN [Suspect]
     Indication: BACTERIAL INFECTION
  2. CEPHALEXIN [Suspect]
     Indication: GENITAL HERPES
  3. AZITHROMYCIN [Suspect]
     Indication: BACTERIAL INFECTION
     Dosage: X1;  DISC. NOS
  4. AZITHROMYCIN [Suspect]
     Indication: GENITAL HERPES
     Dosage: X1;  DISC. NOS

REACTIONS (8)
  - ABDOMINAL PAIN UPPER [None]
  - CHILLS [None]
  - HISTOPLASMOSIS [None]
  - HIV INFECTION [None]
  - PELVIC INFLAMMATORY DISEASE [None]
  - RASH PAPULAR [None]
  - TACHYPNOEA [None]
  - TONGUE DISCOLOURATION [None]
